FAERS Safety Report 13026035 (Version 1)
Quarter: 2016Q4

REPORT INFORMATION
  Report Type: Spontaneous
  Country: US (occurrence: US)
  Receive Date: 20161214
  Receipt Date: 20161214
  Transmission Date: 20170207
  Serious: No
  Sender: FDA-Public Use
  Company Number: US-JNJFOC-20161125530

PATIENT
  Age: 16 Year
  Sex: Female

DRUGS (2)
  1. ORTHO TRI CYCLEN LO [Suspect]
     Active Substance: ETHINYL ESTRADIOL\NORGESTIMATE
     Indication: MENSTRUATION IRREGULAR
     Route: 048
  2. ORTHO TRI CYCLEN LO [Suspect]
     Active Substance: ETHINYL ESTRADIOL\NORGESTIMATE
     Indication: MENSTRUATION IRREGULAR
     Route: 048

REACTIONS (6)
  - Hormone level abnormal [Unknown]
  - Product use issue [Unknown]
  - Off label use [Unknown]
  - Breast operation [Unknown]
  - Infection [Unknown]
  - Acne [Unknown]

NARRATIVE: CASE EVENT DATE: 2016
